FAERS Safety Report 9185896 (Version 1)
Quarter: 2013Q1

REPORT INFORMATION
  Report Type: Spontaneous
  Country: ZA (occurrence: ZA)
  Receive Date: 20130325
  Receipt Date: 20130325
  Transmission Date: 20140127
  Serious: Yes (Other)
  Sender: FDA-Public Use
  Company Number: ZA-ABBOTT-13P-143-1064191-00

PATIENT
  Sex: Male

DRUGS (1)
  1. HUMIRA [Suspect]
     Indication: CROHN^S DISEASE
     Dosage: WK0=160MG?WK2=80MG?WK4=40MG EOW ONWARDS
     Route: 058
     Dates: start: 201102, end: 201303

REACTIONS (3)
  - Orbital pseudotumour [Unknown]
  - Multiple sclerosis [Unknown]
  - Eye infection [Unknown]
